FAERS Safety Report 9904243 (Version 1)
Quarter: 2014Q1

REPORT INFORMATION
  Report Type: Spontaneous
  Country: US (occurrence: US)
  Receive Date: 20140218
  Receipt Date: 20140218
  Transmission Date: 20141002
  Serious: Yes (Other)
  Sender: FDA-Public Use
  Company Number: US-AMGEN-USASP2014010371

PATIENT
  Age: 63 Year
  Sex: Female

DRUGS (3)
  1. PROLIA [Suspect]
     Indication: PRODUCT USED FOR UNKNOWN INDICATION
     Dosage: UNK
     Route: 065
     Dates: start: 2012
  2. SYNTHROID [Concomitant]
  3. CITRACAL                           /00751520/ [Concomitant]

REACTIONS (10)
  - Nephrolithiasis [Unknown]
  - Acne cystic [Recovered/Resolved]
  - Drug ineffective [Unknown]
  - Oral herpes [Recovered/Resolved]
  - Migraine [Unknown]
  - Dysphagia [Recovered/Resolved]
  - Pain [Recovered/Resolved]
  - Herpes virus infection [Unknown]
  - Insomnia [Recovered/Resolved]
  - Asthenia [Recovered/Resolved]
